FAERS Safety Report 9973725 (Version 1)
Quarter: 2014Q1

REPORT INFORMATION
  Report Type: Spontaneous
  Country: FR (occurrence: FR)
  Receive Date: 20140306
  Receipt Date: 20140306
  Transmission Date: 20141002
  Serious: Yes (Disabling, Other)
  Sender: FDA-Public Use
  Company Number: FR-TEVA-466071ISR

PATIENT
  Age: 50 Year
  Sex: Female

DRUGS (9)
  1. FLUOROURACILE TEVA [Suspect]
     Indication: BREAST CANCER
     Route: 042
     Dates: start: 20091204, end: 20091204
  2. FLUOROURACILE TEVA [Suspect]
     Route: 042
     Dates: start: 20091228, end: 20091228
  3. FLUOROURACILE TEVA [Suspect]
     Route: 042
     Dates: start: 20100118, end: 20100118
  4. ENDOXAN [Suspect]
     Indication: BREAST CANCER
     Route: 042
     Dates: start: 20091204, end: 20091204
  5. ENDOXAN [Suspect]
     Route: 042
     Dates: start: 20091228, end: 20091228
  6. ENDOXAN [Suspect]
     Route: 042
     Dates: start: 20100118, end: 20100118
  7. EPIRUBICINE MYLAN [Suspect]
     Indication: BREAST CANCER
     Route: 042
     Dates: start: 20091204, end: 20091204
  8. EPIRUBICINE MYLAN [Suspect]
     Route: 042
     Dates: start: 20091228, end: 20091228
  9. EPIRUBICINE MYLAN [Suspect]
     Route: 042
     Dates: start: 20100118, end: 20100118

REACTIONS (3)
  - Extravasation [Recovered/Resolved]
  - Oedema [Recovered/Resolved]
  - Skin necrosis [Recovered/Resolved]
